FAERS Safety Report 12647334 (Version 1)
Quarter: 2016Q3

REPORT INFORMATION
  Report Type: Spontaneous
  Country: US (occurrence: US)
  Receive Date: 20160812
  Receipt Date: 20160812
  Transmission Date: 20161109
  Serious: No
  Sender: FDA-Public Use
  Company Number: US-ASTRAZENECA-2016SE81845

PATIENT
  Sex: Female
  Weight: 55.8 kg

DRUGS (6)
  1. LOSARTAN. [Concomitant]
     Active Substance: LOSARTAN
  2. LISINOPRIL. [Suspect]
     Active Substance: LISINOPRIL
     Indication: HYPERTENSION
     Route: 048
  3. BRILINTA [Suspect]
     Active Substance: TICAGRELOR
     Indication: STENT PLACEMENT
     Route: 048
     Dates: start: 201605, end: 20160726
  4. ASPIRIN. [Concomitant]
     Active Substance: ASPIRIN
     Dates: start: 201605
  5. CHOLESTEROL PILL [Concomitant]
     Active Substance: UNSPECIFIED INGREDIENT
  6. CLOPIDOGREL [Concomitant]
     Active Substance: CLOPIDOGREL BISULFATE

REACTIONS (4)
  - Chest pain [Unknown]
  - Contusion [Unknown]
  - Dyspnoea [Unknown]
  - Blood pressure fluctuation [Unknown]
